FAERS Safety Report 6419312-5 (Version None)
Quarter: 2009Q4

REPORT INFORMATION
  Report Type: 
  Country: None (occurrence: None)
  Receive Date: 20091029
  Receipt Date: 20091019
  Transmission Date: 20100525
  Serious: Yes (Hospitalization, Other)
  Sender: FDA-Public Use
  Company Number: BE-AMGEN-UK370055

PATIENT
  Age: 72 Year
  Sex: Male
  Weight: 91.2 kg

DRUGS (6)
  1. ARANESP [Suspect]
     Indication: ANAEMIA
     Route: 058
     Dates: start: 20050823, end: 20091018
  2. KREDEX [Concomitant]
     Route: 048
     Dates: start: 20040101
  3. ZYLORIC [Concomitant]
     Route: 048
     Dates: start: 20040101
  4. LIPITOR [Concomitant]
     Route: 048
     Dates: start: 20040111
  5. ASAFLOW [Concomitant]
     Route: 048
     Dates: start: 20040101
  6. NEXIUM [Concomitant]
     Route: 048
     Dates: start: 20090501

REACTIONS (5)
  - ANGINA PECTORIS [None]
  - APLASIA PURE RED CELL [None]
  - HAEMOGLOBIN DECREASED [None]
  - HYPOTENSION [None]
  - SYNCOPE [None]
